FAERS Safety Report 24822657 (Version 2)
Quarter: 2025Q1

REPORT INFORMATION
  Report Type: Spontaneous
  Country: PL (occurrence: PL)
  Receive Date: 20250109
  Receipt Date: 20250204
  Transmission Date: 20250408
  Serious: Yes (Other)
  Sender: CELLTRION
  Company Number: PL-ROCHE-3548234

PATIENT

DRUGS (19)
  1. AVASTIN [Suspect]
     Active Substance: BEVACIZUMAB
     Indication: Hepatocellular carcinoma
     Route: 042
     Dates: start: 20240125
  2. BEVACIZUMAB [Suspect]
     Active Substance: BEVACIZUMAB
     Indication: Hepatocellular carcinoma
     Route: 042
     Dates: start: 20240125
  3. TIRAGOLUMAB [Suspect]
     Active Substance: TIRAGOLUMAB
     Indication: Hepatocellular carcinoma
     Route: 042
     Dates: start: 20240125
  4. ATEZOLIZUMAB [Suspect]
     Active Substance: ATEZOLIZUMAB
     Indication: Hepatocellular carcinoma
     Route: 042
     Dates: start: 20240125
  5. PROPRANOLOL [Concomitant]
     Active Substance: PROPRANOLOL HYDROCHLORIDE
     Route: 048
  6. PROPRANOLOL [Concomitant]
     Active Substance: PROPRANOLOL HYDROCHLORIDE
     Route: 048
     Dates: start: 202201
  7. URSOPOL [Concomitant]
     Indication: Hepatic cirrhosis
     Route: 048
  8. URSOPOL [Concomitant]
     Route: 048
     Dates: start: 202201
  9. ALBIOMIN [Concomitant]
     Indication: Hepatic cirrhosis
  10. ALBIOMIN [Concomitant]
     Indication: Hypoalbuminaemia
     Route: 042
     Dates: start: 20240327, end: 20240327
  11. ALBIOMIN [Concomitant]
     Route: 042
     Dates: start: 20240417, end: 20240417
  12. NASENSPRAY [Concomitant]
     Indication: Insomnia
     Route: 048
     Dates: start: 2022
  13. HEPA MERZ [ORNITHINE ASPARTATE] [Concomitant]
     Route: 042
     Dates: start: 20240414, end: 20240417
  14. HEPA MERZ [ORNITHINE ASPARTATE] [Concomitant]
     Route: 048
     Dates: start: 20240418
  15. ESOMEPRAZOLE MAGNESIUM [Concomitant]
     Active Substance: ESOMEPRAZOLE MAGNESIUM
     Route: 048
  16. ESOMEPRAZOLE MAGNESIUM [Concomitant]
     Active Substance: ESOMEPRAZOLE MAGNESIUM
     Route: 048
     Dates: start: 20240417
  17. PREDNISONE [Concomitant]
     Active Substance: PREDNISONE
     Indication: Liver function test increased
     Route: 048
     Dates: start: 20240417
  18. XIFAXAN [Concomitant]
     Active Substance: RIFAXIMIN
     Route: 048
  19. XIFAXAN [Concomitant]
     Active Substance: RIFAXIMIN
     Route: 048
     Dates: start: 20240417

REACTIONS (3)
  - Hyperthyroidism [Unknown]
  - Liver function test abnormal [Unknown]
  - Intentional product use issue [Unknown]

NARRATIVE: CASE EVENT DATE: 20240415
